FAERS Safety Report 7941929-7 (Version None)
Quarter: 2011Q4

REPORT INFORMATION
  Report Type: 
  Country: None (occurrence: None)
  Receive Date: 20111128
  Receipt Date: 20111118
  Transmission Date: 20120403
  Serious: Yes (Hospitalization, Other)
  Sender: FDA-Public Use
  Company Number: US-BAYER-2011-100351

PATIENT
  Age: 29 Year
  Sex: Female
  Weight: 83.9 kg

DRUGS (4)
  1. PROTONIX [Concomitant]
  2. BENTYL [Concomitant]
  3. FEMCON FE [Concomitant]
  4. YAZ [Suspect]
     Indication: CONTRACEPTION
     Dosage: UNK
     Route: 048
     Dates: start: 20080201, end: 20081001

REACTIONS (6)
  - CHOLECYSTECTOMY [None]
  - NAUSEA [None]
  - PAIN [None]
  - PANCREATITIS [None]
  - INJURY [None]
  - HEADACHE [None]
